FAERS Safety Report 5431414-9 (Version None)
Quarter: 2007Q3

REPORT INFORMATION
  Report Type: 
  Country: None (occurrence: None)
  Receive Date: 20070830
  Receipt Date: 20070601
  Transmission Date: 20080115
  Serious: No
  Sender: FDA-Public Use
  Company Number: A0654129A

PATIENT
  Sex: Female

DRUGS (2)
  1. WELLBUTRIN XL [Suspect]
     Indication: DRUG USE FOR UNKNOWN INDICATION
     Dosage: 300MG PER DAY
     Route: 048
     Dates: start: 20070501, end: 20070501
  2. PRILOSEC [Concomitant]

REACTIONS (5)
  - ABDOMINAL PAIN [None]
  - DYSPEPSIA [None]
  - NAUSEA [None]
  - OESOPHAGEAL PAIN [None]
  - TREMOR [None]
